FAERS Safety Report 6159575-7 (Version None)
Quarter: 2009Q2

REPORT INFORMATION
  Report Type: 
  Country: None (occurrence: None)
  Receive Date: 20090414
  Receipt Date: 20090414
  Transmission Date: 20091009
  Serious: No
  Sender: FDA-Public Use
  Company Number: None

PATIENT
  Sex: Male
  Weight: 22.2263 kg

DRUGS (2)
  1. SERTRALINE [Suspect]
     Indication: ANXIETY
     Dosage: 1 1/2 TABS. PO Q AM AFTER FOOD
     Route: 048
     Dates: start: 20060301, end: 20060901
  2. SERTRALINE [Suspect]
     Indication: NEGATIVISM
     Dosage: 1 1/2 TABS. PO Q AM AFTER FOOD
     Route: 048
     Dates: start: 20060301, end: 20060901

REACTIONS (3)
  - ABNORMAL BEHAVIOUR [None]
  - AGGRESSION [None]
  - PRODUCT SUBSTITUTION ISSUE [None]
